FAERS Safety Report 5871342-8 (Version None)
Quarter: 2008Q3

REPORT INFORMATION
  Report Type: 
  Country: None (occurrence: None)
  Receive Date: 20080904
  Receipt Date: 20080904
  Transmission Date: 20090109
  Serious: No
  Sender: FDA-Public Use
  Company Number: None

PATIENT
  Age: 65 Year
  Sex: Female
  Weight: 61.2356 kg

DRUGS (1)
  1. LEVAQUIN [Suspect]
     Dosage: 750 MG DAILY 7 DAYS
     Dates: start: 20080527, end: 20080601

REACTIONS (4)
  - CHROMATURIA [None]
  - NAUSEA [None]
  - RASH [None]
  - TENDON RUPTURE [None]
